FAERS Safety Report 4299530-5 (Version None)
Quarter: 2004Q1

REPORT INFORMATION
  Report Type: 
  Country: None (occurrence: None)
  Receive Date: 20040217
  Receipt Date: 20040210
  Transmission Date: 20041129
  Serious: Yes (Other)
  Sender: FDA-Public Use
  Company Number: 2004192871US

PATIENT
  Age: 26 Year
  Sex: Female
  Weight: 64.4 kg

DRUGS (2)
  1. DEPO-PROVERA [Suspect]
     Indication: CONTRACEPTION
     Dosage: EVERY 3 MONTHS, 1ST INJECTION
     Dates: start: 20021012, end: 20021012
  2. DEPO-PROVERA [Suspect]
     Indication: CONTRACEPTION
     Dosage: INCOMPLETE INJECTION
     Dates: start: 20031205, end: 20031205

REACTIONS (4)
  - DISCOMFORT [None]
  - HAEMORRHAGIC OVARIAN CYST [None]
  - MEDICATION ERROR [None]
  - URINARY TRACT DISORDER [None]
